FAERS Safety Report 7645712-1 (Version None)
Quarter: 2011Q3

REPORT INFORMATION
  Report Type: 
  Country: None (occurrence: None)
  Receive Date: 20110729
  Receipt Date: 20110725
  Transmission Date: 20111222
  Serious: No
  Sender: FDA-Public Use
  Company Number: US-PFIZER INC-2011169432

PATIENT
  Sex: Female

DRUGS (8)
  1. TOPROL-XL [Concomitant]
     Dosage: 25 MG, UNK
  2. SUTENT [Suspect]
     Dosage: 12.5 MG, 3 CAPSULE FOR 28 DAYS AND 14 DAYS OFF
     Route: 048
  3. MELATONIN [Concomitant]
     Dosage: 1 MG, UNK
  4. BENAZEPRIL [Concomitant]
     Dosage: 5 MG, UNK
  5. AMBIEN [Concomitant]
     Dosage: 5 MG, UNK
  6. ALPRAZOLAM [Concomitant]
     Dosage: 0.25 MG, UNK
  7. SUTENT [Suspect]
     Dosage: 50 MG, 1 CAPSULE DAILY FOR 28 DAYS AND 14 DAYS OFF
     Route: 048
  8. TYLENOL-500 [Concomitant]
     Dosage: 500 MG, UNK

REACTIONS (2)
  - GINGIVAL PAIN [None]
  - RASH [None]
